FAERS Safety Report 5268843-2 (Version None)
Quarter: 2007Q1

REPORT INFORMATION
  Report Type: 
  Country: None (occurrence: None)
  Receive Date: 20061213
  Receipt Date: 20031212
  Transmission Date: 20070707
  Serious: Yes (Other)
  Sender: FDA-Public Use
  Company Number: 2003UW14651

PATIENT
  Age: 58 Year
  Sex: Male

DRUGS (6)
  1. IRESSA [Suspect]
     Indication: LUNG NEOPLASM MALIGNANT
     Dosage: 250 MG DAILY PO
     Route: 048
     Dates: start: 20031029
  2. COUMADIN [Concomitant]
  3. LIPITOR [Concomitant]
  4. ZIAC [Concomitant]
  5. NEXIUM [Concomitant]
  6. LASIX [Concomitant]

REACTIONS (1)
  - BACK PAIN [None]
